FAERS Safety Report 19349246 (Version 1)
Quarter: 2021Q2

REPORT INFORMATION
  Report Type: Spontaneous
  Country: US (occurrence: US)
  Receive Date: 20210529
  Receipt Date: 20210529
  Transmission Date: 20210717
  Serious: No
  Sender: FDA-Public Use
  Company Number: None

PATIENT
  Age: 32 Year
  Sex: Female
  Weight: 45.9 kg

DRUGS (4)
  1. SPIRONOLACTONE. [Concomitant]
     Active Substance: SPIRONOLACTONE
  2. IBUPROFEN. [Concomitant]
     Active Substance: IBUPROFEN
  3. TOPAMAX [Concomitant]
     Active Substance: TOPIRAMATE
  4. PARAGARD T 380A [Suspect]
     Active Substance: COPPER
     Indication: CONTRACEPTION

REACTIONS (3)
  - Device breakage [None]
  - Abdominal pain [None]
  - Device expulsion [None]

NARRATIVE: CASE EVENT DATE: 20210528
